FAERS Safety Report 11105637 (Version 1)
Quarter: 2015Q2

REPORT INFORMATION
  Report Type: Spontaneous
  Country: US (occurrence: None)
  Receive Date: 20150508
  Receipt Date: 20150508
  Transmission Date: 20150821
  Serious: No
  Sender: FDA-Public Use
  Company Number: None

PATIENT
  Age: 61 Year
  Sex: Female
  Weight: 72.58 kg

DRUGS (10)
  1. PREGNENOLONE [Concomitant]
     Active Substance: PREGNENOLONE
  2. PROGESTERONE. [Concomitant]
     Active Substance: PROGESTERONE
  3. MULTI VITAMIN [Concomitant]
     Active Substance: VITAMINS
  4. VITAMIN B COMPLEX [Concomitant]
     Active Substance: CYANOCOBALAMIN\DEXPANTHENOL\NIACINAMIDE\PYRIDOXINE HYDROCHLORIDE\RIBOFLAVIN 5^-PHOSPHATE SODIUM\THIAMINE HYDROCHLORIDE\VITAMIN B COMPLEX
  5. ESTRADIOL/PROGESTERONE [Suspect]
     Active Substance: ESTRADIOL\PROGESTERONE
     Indication: MENOPAUSAL SYMPTOMS
     Dosage: .05ML ONCE DAILY APPLIED TO A SURFACE USUALLY THE SKIN
     Dates: start: 20150421, end: 20150501
  6. THYROID [Concomitant]
     Active Substance: LEVOTHYROXINE\LIOTHYRONINE
  7. TESTOSTERONE. [Concomitant]
     Active Substance: TESTOSTERONE
  8. ESTRADIOL. [Concomitant]
     Active Substance: ESTRADIOL
  9. DHEA [Concomitant]
     Active Substance: DEHYDROEPIANDROSTERONE-3-SULFATE SODIUM
  10. OMEGA [Concomitant]
     Active Substance: CONVALLARIA MAJALIS\CRATAEGUS LAEVIGATA LEAF\PROXYPHYLLINE

REACTIONS (7)
  - Nausea [None]
  - Dyspepsia [None]
  - Peripheral swelling [None]
  - Agitation [None]
  - Vomiting [None]
  - Pruritus generalised [None]
  - Nipple pain [None]

NARRATIVE: CASE EVENT DATE: 20150425
